FAERS Safety Report 8717930 (Version 8)
Quarter: 2014Q3

REPORT INFORMATION
  Report Type: Spontaneous
  Country: US (occurrence: US)
  Receive Date: 20120810
  Receipt Date: 20140805
  Transmission Date: 20150326
  Serious: Yes (Hospitalization, Disabling, Other)
  Sender: FDA-Public Use
  Company Number: US-009507513-1208USA000206

PATIENT
  Sex: Female
  Weight: 71.2 kg

DRUGS (4)
  1. RECLAST [Suspect]
     Active Substance: ZOLEDRONIC ACID
     Dosage: UNK
     Route: 042
     Dates: start: 200904
  2. FOSAMAX [Suspect]
     Active Substance: ALENDRONATE SODIUM
     Dosage: 70 MG, ONCE WEEKLY
     Route: 048
  3. RECLAST [Suspect]
     Active Substance: ZOLEDRONIC ACID
     Indication: OSTEOPOROSIS
     Dosage: UNK
     Route: 042
     Dates: start: 200804
  4. FOSAMAX [Suspect]
     Active Substance: ALENDRONATE SODIUM
     Indication: OSTEOPOROSIS
     Dosage: UNK
     Route: 048
     Dates: start: 1995, end: 2000

REACTIONS (49)
  - Intramedullary rod insertion [Unknown]
  - Depression [Not Recovered/Not Resolved]
  - Ecchymosis [Unknown]
  - Adrenal insufficiency [Unknown]
  - Abdominal hernia [Unknown]
  - Pain [Unknown]
  - Spinal osteoarthritis [Unknown]
  - Foot fracture [Unknown]
  - Blood urea increased [Unknown]
  - Pain in extremity [Unknown]
  - Intramedullary rod insertion [Recovered/Resolved]
  - Hip arthroplasty [Unknown]
  - Femur fracture [Recovered/Resolved]
  - Fall [Unknown]
  - Hyperlipidaemia [Unknown]
  - Low turnover osteopathy [Unknown]
  - Leukocytosis [Unknown]
  - Intermittent claudication [Unknown]
  - Fracture malunion [Unknown]
  - Headache [Unknown]
  - Femur fracture [Recovered/Resolved]
  - Femur fracture [Unknown]
  - Limb injury [Not Recovered/Not Resolved]
  - Foot fracture [Unknown]
  - Gastrooesophageal reflux disease [Unknown]
  - Limb discomfort [Unknown]
  - Abdominal distension [Unknown]
  - Colostomy [Unknown]
  - Impaired healing [Unknown]
  - Deep vein thrombosis [Unknown]
  - Diverticulitis [Unknown]
  - Cholecystectomy [Unknown]
  - Femur fracture [Not Recovered/Not Resolved]
  - Fracture nonunion [Unknown]
  - Musculoskeletal disorder [Unknown]
  - Impaired healing [Recovering/Resolving]
  - Drug dependence [Not Recovered/Not Resolved]
  - Urinary tract infection [Unknown]
  - Glucose tolerance impaired [Unknown]
  - Blood homocysteine increased [Unknown]
  - Fall [Unknown]
  - Ligament sprain [Unknown]
  - Femur fracture [Recovered/Resolved]
  - Sigmoidectomy [Unknown]
  - Restless legs syndrome [Unknown]
  - Lumbar spinal stenosis [Unknown]
  - Foot fracture [Unknown]
  - Musculoskeletal pain [Unknown]
  - Arthralgia [Unknown]

NARRATIVE: CASE EVENT DATE: 2002
